FAERS Safety Report 5703870-X (Version None)
Quarter: 2008Q2

REPORT INFORMATION
  Report Type: 
  Country: None (occurrence: None)
  Receive Date: 20080414
  Receipt Date: 20080401
  Transmission Date: 20081010
  Serious: Yes (Hospitalization)
  Sender: FDA-Public Use
  Company Number: FR-ELI_LILLY_AND_COMPANY-FR200803000162

PATIENT
  Age: 39 Year
  Sex: Male
  Weight: 86 kg

DRUGS (9)
  1. ZYPREXA [Suspect]
     Indication: BIPOLAR DISORDER
     Dosage: 7.5 MG, DAILY (1/D)
     Route: 048
     Dates: start: 20071222, end: 20080121
  2. ZYPREXA [Suspect]
     Dosage: 17.5 MG, DAILY (1/D)
     Route: 048
     Dates: start: 20080121
  3. TERALITHE [Concomitant]
     Indication: BIPOLAR DISORDER
     Dosage: 1000 MG, DAILY (1/D)
     Route: 048
     Dates: start: 19980101, end: 20080120
  4. TERALITHE [Concomitant]
     Dosage: 1200 MG, DAILY (1/D)
     Route: 048
     Dates: start: 20080120
  5. NOZINAN [Concomitant]
  6. MEPRONIZINE [Concomitant]
     Indication: INSOMNIA
     Dosage: 1 D/F, DAILY (1/D)
     Route: 048
     Dates: start: 20071115
  7. XANAX [Concomitant]
     Indication: ANXIETY
     Dosage: 0.5 MG, 2/D
     Route: 048
     Dates: start: 20071222
  8. CYTOMEL [Concomitant]
     Dosage: UNK, UNK
     Route: 048
     Dates: start: 20050101
  9. LEVOTHYROXINE SODIUM [Concomitant]
     Dosage: 200 UG, DAILY (1/D)
     Route: 048
     Dates: start: 20050101

REACTIONS (2)
  - ANTIPSYCHOTIC DRUG LEVEL BELOW THERAPEUTIC [None]
  - POLYDIPSIA [None]
